FAERS Safety Report 18520967 (Version 1)
Quarter: 2020Q4

REPORT INFORMATION
  Report Type: Report from Study
  Country: None (occurrence: US)
  Receive Date: 20201119
  Receipt Date: 20201119
  Transmission Date: 20210114
  Serious: Yes (Other)
  Sender: FDA-Public Use
  Company Number: US-ABBVIE-20K-163-3651120-00

PATIENT
  Sex: Female

DRUGS (2)
  1. SKYRIZI [Suspect]
     Active Substance: RISANKIZUMAB-RZAA
     Indication: PSORIASIS
     Route: 058
  2. PREDNISONE. [Concomitant]
     Active Substance: PREDNISONE
     Indication: PRODUCT USED FOR UNKNOWN INDICATION

REACTIONS (9)
  - Fall [Unknown]
  - Blister [Unknown]
  - Tendon rupture [Unknown]
  - Musculoskeletal disorder [Unknown]
  - Weight increased [Unknown]
  - Mobility decreased [Unknown]
  - Knee arthroplasty [Unknown]
  - Foot deformity [Unknown]
  - Peripheral vascular disorder [Unknown]
